FAERS Safety Report 16765461 (Version 2)
Quarter: 2019Q4

REPORT INFORMATION
  Report Type: Report from Study
  Country: US (occurrence: US)
  Receive Date: 20190903
  Receipt Date: 20191119
  Transmission Date: 20200122
  Serious: Yes (Other)
  Sender: FDA-Public Use
  Company Number: US-TEVA-2019-US-1101944

PATIENT
  Sex: Female

DRUGS (1)
  1. COPAXONE [Suspect]
     Active Substance: GLATIRAMER ACETATE
     Dosage: FORM STRENGTH: UNKNOWN
     Dates: end: 20190814

REACTIONS (9)
  - Multiple sclerosis [Unknown]
  - Dyspnoea [Unknown]
  - Cardiac flutter [Recovering/Resolving]
  - Injection site mass [Unknown]
  - Injection site swelling [Unknown]
  - Back pain [Unknown]
  - Injection site pain [Unknown]
  - Scar [Unknown]
  - Injection site pruritus [Unknown]
